FAERS Safety Report 6650317-5 (Version None)
Quarter: 2010Q1

REPORT INFORMATION
  Report Type: 
  Country: None (occurrence: None)
  Receive Date: 20100325
  Receipt Date: 20100315
  Transmission Date: 20100710
  Serious: Yes (Other)
  Sender: FDA-Public Use
  Company Number: PHHY2010BR16303

PATIENT
  Age: 30 Year
  Sex: Female
  Weight: 73 kg

DRUGS (2)
  1. FORASEQ [Suspect]
     Indication: ASTHMA
     Dosage: INHALATION OF 1 CAPSULE OF EACH SUBSTANCE ONCE A DAY
     Dates: start: 20070101
  2. YASMIN [Concomitant]
     Indication: ORAL CONTRACEPTION
     Dosage: UNK
     Route: 048

REACTIONS (3)
  - BILIARY TRACT DISORDER [None]
  - HEART RATE INCREASED [None]
  - SURGERY [None]
